FAERS Safety Report 16287923 (Version 1)
Quarter: 2019Q2

REPORT INFORMATION
  Report Type: Spontaneous
  Country: US (occurrence: US)
  Receive Date: 20190508
  Receipt Date: 20190508
  Transmission Date: 20190711
  Serious: No
  Sender: FDA-Public Use
  Company Number: US-LEXICON PHARMACEUTICALS, INC-19-1606-00469

PATIENT
  Sex: Male

DRUGS (9)
  1. CARVEDILOL. [Concomitant]
     Active Substance: CARVEDILOL
  2. TELOTRISTAT ETHYL [Suspect]
     Active Substance: TELOTRISTAT ETHYL
     Indication: CARCINOID SYNDROME
     Route: 048
     Dates: start: 20190407
  3. PRAVASTATIN. [Concomitant]
     Active Substance: PRAVASTATIN
  4. WARFARIN [Concomitant]
     Active Substance: WARFARIN
  5. SOMATULINE [Concomitant]
     Active Substance: LANREOTIDE ACETATE
  6. AMIODARONE [Concomitant]
     Active Substance: AMIODARONE
  7. FUROSEMIDE. [Concomitant]
     Active Substance: FUROSEMIDE
  8. LOSARTAN. [Concomitant]
     Active Substance: LOSARTAN
  9. ALDACTONE [Concomitant]
     Active Substance: SPIRONOLACTONE

REACTIONS (2)
  - Wrong technique in product usage process [Unknown]
  - Nausea [Recovered/Resolved]
